FAERS Safety Report 5634973-6 (Version None)
Quarter: 2008Q1

REPORT INFORMATION
  Report Type: 
  Country: None (occurrence: None)
  Receive Date: 20080221
  Receipt Date: 20080221
  Transmission Date: 20080703
  Serious: Yes (Hospitalization)
  Sender: FDA-Public Use
  Company Number: None

PATIENT
  Age: 61 Year
  Sex: Male
  Weight: 66 kg

DRUGS (1)
  1. OXALIPLATIN [Suspect]
     Dosage: 145MG OTHER IV
     Route: 042
     Dates: start: 20070701, end: 20080104

REACTIONS (1)
  - THROMBOCYTOPENIA [None]
